FAERS Safety Report 8331919-7 (Version None)
Quarter: 2012Q2

REPORT INFORMATION
  Report Type: 
  Country: None (occurrence: None)
  Receive Date: 20120502
  Receipt Date: 20120420
  Transmission Date: 20120825
  Serious: Yes (Hospitalization, Other)
  Sender: FDA-Public Use
  Company Number: BR-ELI_LILLY_AND_COMPANY-BR201111002549

PATIENT
  Sex: Female

DRUGS (1)
  1. FORTEO [Suspect]
     Indication: OSTEOPOROSIS
     Dosage: UNK, QD
     Route: 058
     Dates: start: 20090701

REACTIONS (5)
  - LOCALISED INFECTION [None]
  - PNEUMONIA [None]
  - SPINAL DISORDER [None]
  - SURGERY [None]
  - INCORRECT DRUG ADMINISTRATION DURATION [None]
